FAERS Safety Report 6127949-6 (Version None)
Quarter: 2009Q1

REPORT INFORMATION
  Report Type: 
  Country: None (occurrence: None)
  Receive Date: 20090323
  Receipt Date: 20080724
  Transmission Date: 20090719
  Serious: No
  Sender: FDA-Public Use
  Company Number: US-ABBOTT-08P-163-0465285-00

PATIENT
  Sex: Female
  Weight: 56.296 kg

DRUGS (2)
  1. E-MYCIN [Suspect]
     Indication: PROPHYLAXIS
     Dates: start: 19830101, end: 19830101
  2. E-MYCIN [Suspect]
     Indication: DENTAL CARE

REACTIONS (2)
  - ABDOMINAL DISCOMFORT [None]
  - SKIN DISCOLOURATION [None]
